FAERS Safety Report 19046886 (Version 3)
Quarter: 2021Q2

REPORT INFORMATION
  Report Type: Spontaneous
  Country: JP (occurrence: JP)
  Receive Date: 20210323
  Receipt Date: 20210623
  Transmission Date: 20210717
  Serious: Yes (Hospitalization)
  Sender: FDA-Public Use
  Company Number: JP-DSJP-DSJ-2021-107732

PATIENT
  Age: 65 Year
  Sex: Male
  Weight: 48 kg

DRUGS (3)
  1. ENHERTU [Suspect]
     Active Substance: FAM-TRASTUZUMAB DERUXTECAN-NXKI
     Indication: GASTRIC CANCER
     Dosage: 200 MG, ONCE EVERY 3 WK
     Route: 041
     Dates: start: 20210113, end: 20210113
  2. ENHERTU [Suspect]
     Active Substance: FAM-TRASTUZUMAB DERUXTECAN-NXKI
     Dosage: 200 MG, ONCE EVERY 3 WK
     Route: 041
     Dates: start: 20210303, end: 20210303
  3. ENHERTU [Suspect]
     Active Substance: FAM-TRASTUZUMAB DERUXTECAN-NXKI
     Dosage: 200 MG, ONCE EVERY 3 WK
     Route: 041
     Dates: start: 20210210, end: 20210210

REACTIONS (4)
  - Decreased appetite [Recovering/Resolving]
  - Cerebral infarction [Recovered/Resolved with Sequelae]
  - Malaise [Recovering/Resolving]
  - Cerebral infarction [Recovered/Resolved with Sequelae]

NARRATIVE: CASE EVENT DATE: 20210313
